FAERS Safety Report 7969048-4 (Version None)
Quarter: 2011Q4

REPORT INFORMATION
  Report Type: 
  Country: None (occurrence: None)
  Receive Date: 20111209
  Receipt Date: 20111202
  Transmission Date: 20120403
  Serious: Yes (Hospitalization)
  Sender: FDA-Public Use
  Company Number: US-US-EMD SERONO, INC.-7100035

PATIENT
  Sex: Female

DRUGS (2)
  1. REBIF [Suspect]
     Indication: MULTIPLE SCLEROSIS
     Route: 058
     Dates: start: 20110516, end: 20111115
  2. REBIF [Suspect]
     Route: 058
     Dates: start: 20111201

REACTIONS (2)
  - ADVERSE DRUG REACTION [None]
  - ABDOMINAL HERNIA [None]
